FAERS Safety Report 25013493 (Version 1)
Quarter: 2025Q1

REPORT INFORMATION
  Report Type: Spontaneous
  Country: FR (occurrence: FR)
  Receive Date: 20250226
  Receipt Date: 20250226
  Transmission Date: 20250408
  Serious: Yes (Hospitalization, Other)
  Sender: CHEPLAPHARM
  Company Number: None

PATIENT
  Age: 70 Year
  Sex: Male
  Weight: 90 kg

DRUGS (20)
  1. VALGANCICLOVIR [Suspect]
     Active Substance: VALGANCICLOVIR
     Indication: Antiviral prophylaxis
     Dosage: EVERY 2 DAY; 450MGX3/WEEK. 1350 MG EVERY WEEK. DISCONTINUATION OF CELLCEPT AND VALGANCICLOVIR ON ...
     Route: 048
     Dates: start: 20240815, end: 20250126
  2. VALGANCICLOVIR [Suspect]
     Active Substance: VALGANCICLOVIR
     Indication: Antiviral prophylaxis
     Dosage: RESUMPTION OF VALGANCICLOVIR ON 01/02/25
     Route: 048
     Dates: start: 20250201
  3. PREDNISONE [Suspect]
     Active Substance: PREDNISONE
     Indication: Renal transplant
     Dosage: IN THE MORNING?DAILY DOSE: 10 MILLIGRAM
     Dates: start: 20241016
  4. CELLCEPT [Suspect]
     Active Substance: MYCOPHENOLATE MOFETIL
     Indication: Renal transplant
     Dosage: 2G/DAY?DAILY DOSE: 2 GRAM
     Route: 048
     Dates: start: 20240814, end: 20241122
  5. CELLCEPT [Suspect]
     Active Substance: MYCOPHENOLATE MOFETIL
     Indication: Renal transplant
     Dosage: 1G/DAY?DAILY DOSE: 1 GRAM
     Route: 048
     Dates: start: 20241123, end: 20241201
  6. CELLCEPT [Suspect]
     Active Substance: MYCOPHENOLATE MOFETIL
     Indication: Renal transplant
     Dosage: 2G/DAY?DAILY DOSE: 2 GRAM
     Route: 048
     Dates: start: 20241202, end: 20250122
  7. CELLCEPT [Suspect]
     Active Substance: MYCOPHENOLATE MOFETIL
     Indication: Renal transplant
     Dosage: 1G/DAY?DAILY DOSE: 1 GRAM
     Route: 048
     Dates: start: 20250123, end: 20250126
  8. CELLCEPT [Suspect]
     Active Substance: MYCOPHENOLATE MOFETIL
     Indication: Renal transplant
     Route: 048
     Dates: start: 20250131
  9. BELATACEPT [Suspect]
     Active Substance: BELATACEPT
     Indication: Renal transplant
     Dosage: 1 INJECTION PER MONTH
     Dates: start: 20241016
  10. BACTRIM [Suspect]
     Active Substance: SULFAMETHOXAZOLE\TRIMETHOPRIM
     Indication: Antiviral prophylaxis
  11. COTRIMOXAZOLE [Suspect]
     Active Substance: SULFAMETHOXAZOLE\TRIMETHOPRIM
     Indication: Antiviral prophylaxis
     Dosage: COTRIMOXAZOLE 3X/WEEK
  12. FOLIC ACID [Concomitant]
     Active Substance: FOLIC ACID
     Dosage: IN THE EVENING?DAILY DOSE: 5 MILLIGRAM
  13. ASPIRIN [Concomitant]
     Active Substance: ASPIRIN
     Dosage: AT LUNCHTIME?DAILY DOSE: 100 MILLIGRAM
  14. ATORVASTATIN [Concomitant]
     Active Substance: ATORVASTATIN
     Dosage: IN THE EVENING?DAILY DOSE: 40 MILLIGRAM
  15. FUROSEMIDE [Concomitant]
     Active Substance: FUROSEMIDE
     Dosage: IN THE MORNING?DAILY DOSE: 750 MILLIGRAM
  16. MAGNESIUM [Concomitant]
     Active Substance: MAGNESIUM
     Dosage: 2 SACCHETS IN THE MORNING
  17. PANTOPRAZOLE [Concomitant]
     Active Substance: PANTOPRAZOLE
     Dosage: IN THE EVENING?DAILY DOSE: 20 MILLIGRAM
  18. AMLODIPINE [Concomitant]
     Active Substance: AMLODIPINE BESYLATE
     Dosage: IN THE MORNING?DAILY DOSE: 5 MILLIGRAM
  19. Diffuse K [Concomitant]
  20. TACROLIMUS [Concomitant]
     Active Substance: TACROLIMUS

REACTIONS (6)
  - Granulocytes maturation arrest [Recovered/Resolved]
  - Renal failure [Unknown]
  - Blood disorder [Unknown]
  - Leukopenia [Unknown]
  - Cytomegalovirus infection [Unknown]
  - Drug ineffective [Unknown]

NARRATIVE: CASE EVENT DATE: 20250122
